FAERS Safety Report 10660604 (Version 1)
Quarter: 2014Q4

REPORT INFORMATION
  Report Type: Spontaneous
  Country: US (occurrence: US)
  Receive Date: 20141217
  Receipt Date: 20141217
  Transmission Date: 20150529
  Serious: No
  Sender: FDA-Public Use
  Company Number: US-PURDUE-USA-2014-0117757

PATIENT
  Age: 51 Year
  Sex: Female

DRUGS (4)
  1. HYDROMORPHONE HCL (SIMILAR TO 19-892) [Suspect]
     Active Substance: HYDROMORPHONE HYDROCHLORIDE
     Indication: ARACHNOIDITIS
     Dosage: 32 MG, DAILY
     Route: 048
  2. GABAPENTIN. [Suspect]
     Active Substance: GABAPENTIN
     Indication: ARACHNOIDITIS
     Dosage: 300 MG, DAILY
     Route: 048
  3. OXYCODONE HYDROCHLORIDE (SIMILAR TO NDA 22-272) [Suspect]
     Active Substance: OXYCODONE HYDROCHLORIDE
     Indication: ARACHNOIDITIS
     Dosage: 40 MG, TID
     Route: 048
  4. ALPRAZOLAM. [Suspect]
     Active Substance: ALPRAZOLAM
     Indication: ARACHNOIDITIS
     Dosage: 1.75 MG, DAILY
     Route: 048

REACTIONS (10)
  - Dehydroepiandrosterone decreased [Recovered/Resolved]
  - Constipation [Unknown]
  - Pain [Recovering/Resolving]
  - Insomnia [Unknown]
  - Blood cortisol decreased [Recovered/Resolved]
  - Blood testosterone decreased [Recovered/Resolved]
  - Urinary hesitation [Unknown]
  - C-reactive protein increased [Recovered/Resolved]
  - Mobility decreased [Recovering/Resolving]
  - Inadequate analgesia [Recovering/Resolving]
